FAERS Safety Report 23429436 (Version 2)
Quarter: 2024Q1

REPORT INFORMATION
  Report Type: Report from Study
  Country: US (occurrence: US)
  Receive Date: 20240122
  Receipt Date: 20240124
  Transmission Date: 20240410
  Serious: Yes (Other)
  Sender: FDA-Public Use
  Company Number: US-AMRYT PHARMACEUTICALS DAC-AEGR006864

PATIENT

DRUGS (7)
  1. MYALEPT [Suspect]
     Active Substance: METRELEPTIN
     Indication: Congenital generalised lipodystrophy
     Dosage: 36 MILLILITER, BID INJECTION
     Route: 050
     Dates: start: 2013
  2. LEVOTHYROXINE [Concomitant]
     Active Substance: LEVOTHYROXINE\LEVOTHYROXINE SODIUM
     Indication: Congenital generalised lipodystrophy
     Dosage: UNK, QD
     Route: 048
  3. PREDNISOLONE [Concomitant]
     Active Substance: PREDNISOLONE
     Indication: Congenital generalised lipodystrophy
     Dosage: UNK, QD
     Route: 048
     Dates: start: 2017
  4. CHOLECALCIFEROL [Concomitant]
     Active Substance: CHOLECALCIFEROL
     Indication: Congenital generalised lipodystrophy
     Dosage: UNK
     Route: 048
     Dates: start: 2021
  5. RETINOL [Concomitant]
     Active Substance: RETINOL
     Indication: Congenital generalised lipodystrophy
     Dosage: UNK
     Route: 048
     Dates: start: 2021
  6. VITAMIN K [Concomitant]
     Active Substance: PHYTONADIONE
     Indication: Congenital generalised lipodystrophy
     Dosage: UNK
     Route: 048
     Dates: start: 2021
  7. IRON [Concomitant]
     Active Substance: IRON
     Indication: Congenital generalised lipodystrophy
     Dosage: UNK
     Route: 048
     Dates: start: 2021

REACTIONS (1)
  - Blood glucose abnormal [Not Recovered/Not Resolved]

NARRATIVE: CASE EVENT DATE: 20130101
